FAERS Safety Report 23384800 (Version 1)
Quarter: 2024Q1

REPORT INFORMATION
  Report Type: Spontaneous
  Country: US (occurrence: US)
  Receive Date: 20240109
  Receipt Date: 20240109
  Transmission Date: 20240409
  Serious: Yes (Death)
  Sender: FDA-Public Use
  Company Number: US-JNJFOC-20240110802

PATIENT
  Sex: Female
  Weight: 62.6 kg

DRUGS (2)
  1. TECVAYLI [Suspect]
     Active Substance: TECLISTAMAB-CQYV
     Indication: Product used for unknown indication
     Dosage: STRENGTH: TECVAYLI INJECTION 153/1.7
     Route: 058
  2. TECVAYLI [Suspect]
     Active Substance: TECLISTAMAB-CQYV
     Dosage: STRENGTH: TECVAYLI INJECTION 153/1.7?DOSE 93.9MG (1.5MG/KG X 62.6KG)
     Route: 058

REACTIONS (1)
  - Death [Fatal]
